FAERS Safety Report 22615962 (Version 1)
Quarter: 2023Q2

REPORT INFORMATION
  Report Type: Spontaneous
  Country: CN (occurrence: CN)
  Receive Date: 20230619
  Receipt Date: 20230619
  Transmission Date: 20230721
  Serious: Yes (Life-Threatening, Hospitalization, Other)
  Sender: FDA-Public Use
  Company Number: CN-AUROBINDO-AUR-APL-2023-042946

PATIENT
  Sex: Male
  Weight: 88 kg

DRUGS (3)
  1. EVOMELA [Suspect]
     Active Substance: MELPHALAN HYDROCHLORIDE
     Indication: Plasma cell myeloma
     Dosage: 67 MILLIGRAM, ONCE A DAY, 67 MG, QD
     Route: 058
     Dates: start: 20230518, end: 20230518
  2. EVOMELA [Suspect]
     Active Substance: MELPHALAN HYDROCHLORIDE
     Indication: Bone marrow transplant
     Dosage: 67 MILLIGRAM, ONCE A DAY, 67 MG, QD
     Route: 058
     Dates: start: 20230519, end: 20230523
  3. GRANULOCYTE COLONY-STIMULATING FACTOR NOS [Suspect]
     Active Substance: GRANULOCYTE COLONY-STIMULATING FACTOR NOS
     Indication: Agranulocytosis
     Dosage: 200 MICROGRAM, TWO TIMES A DAY
     Route: 058
     Dates: start: 20230603, end: 20230605

REACTIONS (2)
  - Myelosuppression [Recovering/Resolving]
  - Off label use [Unknown]

NARRATIVE: CASE EVENT DATE: 20230518
